FAERS Safety Report 14916234 (Version 1)
Quarter: 2018Q2

REPORT INFORMATION
  Report Type: Report from Study
  Country: CN (occurrence: CN)
  Receive Date: 20180518
  Receipt Date: 20180518
  Transmission Date: 20180711
  Serious: Yes (Other)
  Sender: FDA-Public Use
  Company Number: CN-ROCHE-1935806

PATIENT
  Sex: Male
  Weight: 60 kg

DRUGS (1)
  1. AVASTIN [Suspect]
     Active Substance: BEVACIZUMAB
     Indication: RECTAL CANCER
     Route: 041
     Dates: start: 20161128

REACTIONS (5)
  - Weight decreased [Unknown]
  - Intestinal obstruction [Unknown]
  - Decreased appetite [Unknown]
  - Enteritis [Unknown]
  - Diarrhoea [Unknown]
